FAERS Safety Report 7238094-0 (Version None)
Quarter: 2011Q1

REPORT INFORMATION
  Report Type: 
  Country: None (occurrence: None)
  Receive Date: 20110121
  Receipt Date: 20110113
  Transmission Date: 20110831
  Serious: Yes (Hospitalization, Disabling)
  Sender: FDA-Public Use
  Company Number: D0069567A

PATIENT
  Sex: Male
  Weight: 74 kg

DRUGS (4)
  1. ARIXTRA [Suspect]
     Dosage: 5MG PER DAY
     Route: 058
     Dates: start: 20100112, end: 20100222
  2. RAMIPRIL [Concomitant]
     Dosage: 2.5MG TWICE PER DAY
     Route: 048
  3. HYDROCHLOROTHIAZDE TAB [Concomitant]
     Dosage: 25MG PER DAY
     Route: 048
  4. METOPROLOL SUCCINAT [Concomitant]
     Dosage: 47.5MG TWICE PER DAY
     Route: 048

REACTIONS (7)
  - PLEURAL EFFUSION [None]
  - TACHYCARDIA [None]
  - HAEMOGLOBIN DECREASED [None]
  - PLEURAL DISORDER [None]
  - PERICARDIAL EFFUSION [None]
  - PARAESTHESIA [None]
  - PAIN [None]
